FAERS Safety Report 25908077 (Version 2)
Quarter: 2025Q4

REPORT INFORMATION
  Report Type: Spontaneous
  Country: EU (occurrence: EU)
  Receive Date: 20251010
  Receipt Date: 20251022
  Transmission Date: 20260117
  Serious: Yes (Life-Threatening, Other)
  Sender: MERCK SHARP & DOHME LLC
  Company Number: EU-PFIZER INC-202400329301

PATIENT
  Age: 18 Year
  Sex: Female
  Weight: 50 kg

DRUGS (23)
  1. CILASTATIN\IMIPENEM\RELEBACTAM [Suspect]
     Active Substance: CILASTATIN\IMIPENEM\RELEBACTAM
     Indication: Pseudomonas infection
     Dosage: UNK
  2. MYCOPHENOLATE MOFETIL [Concomitant]
     Active Substance: MYCOPHENOLATE MOFETIL
     Indication: Immunosuppression
     Dosage: FROM DAY +1 (TRANSPLANT)
  3. AZACITIDINE [Concomitant]
     Active Substance: AZACITIDINE
     Indication: Acute undifferentiated leukaemia
     Dosage: TWO CYCLES AT 4-5 WEEK INTERVALS
  4. CYTARABINE [Concomitant]
     Active Substance: CYTARABINE
     Indication: Acute undifferentiated leukaemia
     Dosage: STARTED ON DAY 25 OF CHEMOTHERAPY
  5. VANCOMYCIN [Suspect]
     Active Substance: VANCOMYCIN
     Indication: Febrile neutropenia
     Dosage: UNK
  6. VANCOMYCIN [Suspect]
     Active Substance: VANCOMYCIN
     Indication: Febrile neutropenia
     Dosage: UNK
  7. MELPHALAN [Concomitant]
     Active Substance: MELPHALAN
     Indication: Acute undifferentiated leukaemia
     Dosage: UNK
  8. CYCLOSPORINE [Concomitant]
     Active Substance: CYCLOSPORINE
     Indication: Immunosuppression
     Dosage: FROM DAY -1 (TRANSPLANT)
  9. PIPERACILLIN SODIUM\TAZOBACTAM SODIUM [Suspect]
     Active Substance: PIPERACILLIN SODIUM\TAZOBACTAM SODIUM
     Indication: Febrile neutropenia
     Dosage: UNK
  10. FENTANYL [Concomitant]
     Active Substance: FENTANYL
     Indication: Analgesic therapy
     Dosage: UNK
     Route: 062
  11. IDARUBICIN HYDROCHLORIDE [Concomitant]
     Active Substance: IDARUBICIN HYDROCHLORIDE
     Indication: Acute undifferentiated leukaemia
     Dosage: STARTED ON DAY 25 OF CHEMOTHERAPY
  12. FOSFOMYCIN [Suspect]
     Active Substance: FOSFOMYCIN
     Indication: Evidence based treatment
     Dosage: UNK
  13. MEROPENEM [Suspect]
     Active Substance: MEROPENEM
     Dosage: ON DAY 18 OF CHEMOTHERAPY
  14. COLISTIN [Suspect]
     Active Substance: COLISTIN
     Indication: Pseudomonas infection
     Dosage: UNK
  15. CYCLOPHOSPHAMIDE [Concomitant]
     Active Substance: CYCLOPHOSPHAMIDE
     Dosage: POST-TRANSPLANT ON DAYS +3 AND +5
  16. AVIBACTAM SODIUM\CEFTAZIDIME [Suspect]
     Active Substance: AVIBACTAM SODIUM\CEFTAZIDIME
     Indication: Evidence based treatment
     Dosage: UNK
  17. AVIBACTAM SODIUM\CEFTAZIDIME [Suspect]
     Active Substance: AVIBACTAM SODIUM\CEFTAZIDIME
     Indication: Evidence based treatment
     Dosage: UNK
  18. DICLOFENAC [Concomitant]
     Active Substance: DICLOFENAC
     Indication: Analgesic therapy
     Dosage: UNK
     Route: 042
  19. AMIKACIN [Suspect]
     Active Substance: AMIKACIN
     Indication: Antibiotic therapy
     Dosage: UNK
  20. AMIKACIN [Suspect]
     Active Substance: AMIKACIN
     Indication: Antibiotic therapy
     Dosage: UNK
  21. VENETOCLAX [Concomitant]
     Active Substance: VENETOCLAX
     Indication: Acute undifferentiated leukaemia
     Dosage: STARTED ON DAY 25 OF CHEMOTHERAPY
  22. VENETOCLAX [Concomitant]
     Active Substance: VENETOCLAX
     Indication: Acute undifferentiated leukaemia
     Dosage: TWO CYCLES AT 4-5 WEEK INTERVALS
  23. FLUDARABINE [Concomitant]
     Active Substance: FLUDARABINE PHOSPHATE
     Indication: Acute undifferentiated leukaemia
     Dosage: STARTED ON DAY 25 OF CHEMOTHERAPY

REACTIONS (2)
  - Pathogen resistance [Recovered/Resolved]
  - Pseudomonas infection [Recovered/Resolved]
